FAERS Safety Report 19381617 (Version 2)
Quarter: 2021Q2

REPORT INFORMATION
  Report Type: Spontaneous
  Country: FR (occurrence: FR)
  Receive Date: 20210607
  Receipt Date: 20210628
  Transmission Date: 20210717
  Serious: Yes (Other)
  Sender: FDA-Public Use
  Company Number: FR-ALIMERA SCIENCES LIMITED-FR-A16013-21-000112

PATIENT

DRUGS (2)
  1. ILUVIEN [Suspect]
     Active Substance: FLUOCINOLONE ACETONIDE
     Indication: PRODUCT USED FOR UNKNOWN INDICATION
     Dosage: 0.25 MICROGRAM, QD?UNKONWN EYE
     Route: 031
  2. OZURDEX [Concomitant]
     Active Substance: DEXAMETHASONE

REACTIONS (3)
  - Macular fibrosis [Unknown]
  - Eye operation [Recovered/Resolved]
  - Disease progression [Unknown]
